FAERS Safety Report 6692710-0 (Version None)
Quarter: 2010Q2

REPORT INFORMATION
  Report Type: 
  Country: None (occurrence: None)
  Receive Date: 20100419
  Receipt Date: 20100405
  Transmission Date: 20101027
  Serious: Yes (Hospitalization)
  Sender: FDA-Public Use
  Company Number: US-JNJFOC-20100401581

PATIENT
  Age: 87 Year
  Sex: Female
  Weight: 51.3 kg

DRUGS (11)
  1. DECITABINE (DECITABINE) LYOPHILIZED [Suspect]
     Indication: ACUTE MYELOID LEUKAEMIA
     Dosage: 20 MG/M2, INTRAVENOUS, 20 MG/M2, INTRAVENOUS
     Route: 042
     Dates: start: 20100227, end: 20100303
  2. DECITABINE (DECITABINE) LYOPHILIZED [Suspect]
     Indication: ACUTE MYELOID LEUKAEMIA
     Dosage: 20 MG/M2, INTRAVENOUS, 20 MG/M2, INTRAVENOUS
     Route: 042
     Dates: start: 20100329, end: 20100330
  3. CYTARABINE [Suspect]
     Indication: ACUTE MYELOID LEUKAEMIA
     Dosage: 20 MG/M2, SUBCUTANEOUS, 20 MG/M2, SUBCUTANEOUS
     Route: 058
     Dates: start: 20100227, end: 20100303
  4. CYTARABINE [Suspect]
     Indication: ACUTE MYELOID LEUKAEMIA
     Dosage: 20 MG/M2, SUBCUTANEOUS, 20 MG/M2, SUBCUTANEOUS
     Route: 058
     Dates: start: 20100329, end: 20100330
  5. GRANULOCYTE COLONY STIMULATING FACTOR (GRANULOCYTE COLONY STIMULATING [Suspect]
     Indication: ACUTE MYELOID LEUKAEMIA
     Dosage: 300 MG, SUBCUTANEOUS, 300 MG SUBCUTANEOUS,
     Route: 058
     Dates: start: 20100227, end: 20100303
  6. GRANULOCYTE COLONY STIMULATING FACTOR (GRANULOCYTE COLONY STIMULATING [Suspect]
     Indication: ACUTE MYELOID LEUKAEMIA
     Dosage: 300 MG, SUBCUTANEOUS, 300 MG SUBCUTANEOUS,
     Route: 058
     Dates: start: 20100329, end: 20100330
  7. PROPRANOLOL (PROPRANOLOL) [Concomitant]
  8. PRILOSEC [Concomitant]
  9. REGLAN [Concomitant]
  10. POTASSIUM CHLORIDE [Concomitant]
  11. VORICONAZOLE [Concomitant]

REACTIONS (7)
  - CARDIAC FAILURE CONGESTIVE [None]
  - DYSPNOEA [None]
  - FUNGAL INFECTION [None]
  - HYPOXIA [None]
  - PLEURAL EFFUSION [None]
  - THROMBOCYTOPENIA [None]
  - URINARY TRACT INFECTION ENTEROCOCCAL [None]
